FAERS Safety Report 4775495-4 (Version None)
Quarter: 2005Q3

REPORT INFORMATION
  Report Type: 
  Country: None (occurrence: None)
  Receive Date: 20050920
  Receipt Date: 20050912
  Transmission Date: 20060218
  Serious: Yes (Other)
  Sender: FDA-Public Use
  Company Number: 2005103949

PATIENT
  Age: 52 Year
  Sex: Male
  Weight: 77.1115 kg

DRUGS (8)
  1. LIPITOR [Suspect]
     Indication: CORONARY ARTERY DISEASE
     Dosage: 20 MG (20 MG, 1 IN 1 D), ORAL
     Route: 048
     Dates: start: 20050624
  2. METHADONE HCL [Concomitant]
  3. TRAZODONE HCL [Concomitant]
  4. ALL OTHER THERAPEUTIC PRODUCTS (ALL OTHER THERAPEUTIC PRODUCTS) [Concomitant]
  5. LACTULOSE [Concomitant]
  6. ANDROGEL [Concomitant]
  7. PROTONIX [Concomitant]
  8. SYNTHROID [Concomitant]

REACTIONS (4)
  - BACK PAIN [None]
  - BLOOD TEST ABNORMAL [None]
  - MYALGIA [None]
  - PARALYSIS [None]
